FAERS Safety Report 18350245 (Version 2)
Quarter: 2021Q2

REPORT INFORMATION
  Report Type: Spontaneous
  Country: US (occurrence: US)
  Receive Date: 20201006
  Receipt Date: 20210623
  Transmission Date: 20210717
  Serious: Yes (Hospitalization, Other)
  Sender: FDA-Public Use
  Company Number: US-JNJFOC-A-NJ2019-195746

PATIENT
  Age: 73 Year
  Sex: Female
  Weight: 109.6 kg

DRUGS (21)
  1. ADVAIR HFA [Concomitant]
     Active Substance: FLUTICASONE PROPIONATE\SALMETEROL XINAFOATE
     Dosage: 100? 50 MCG, TAKE 1 PUFF INHALATION EVERY 12 HOURS.
  2. NYSTATIN. [Concomitant]
     Active Substance: NYSTATIN
     Indication: OROPHARYNGEAL CANDIDIASIS
     Dosage: SWISH AND SPLIT 5ML BY MOUTH 4 TIMES DAILY.
  3. OXYGEN. [Concomitant]
     Active Substance: OXYGEN
  4. UPTRAVI [Suspect]
     Active Substance: SELEXIPAG
     Indication: PULMONARY ARTERIAL HYPERTENSION
     Dosage: 600 MCG, BID
     Route: 048
     Dates: start: 20190801
  5. FUROSEMIDE. [Concomitant]
     Active Substance: FUROSEMIDE
     Indication: OEDEMA
     Dosage: TAKE 4 TABLETS BY MOUTH DAILY. MAY TAKE AN ADDITIONAL 40 MG IN PM PRN WEIGHT GAIN }2?3LBS WEIGHT GAI
     Route: 048
  6. PROPYLENE GLYCOL [Concomitant]
     Active Substance: PROPYLENE GLYCOL
     Dosage: APPLY 1 DROP TO EYE 4 TIMES DAILY AS NEEDED
  7. SYSTANE BALANCE [Concomitant]
     Active Substance: PROPYLENE GLYCOL
     Indication: DRY EYE
     Dosage: APPLY 1 DROP TO EYE 4 TIMES DAILY AS NEEDED.
  8. METOPROLOL. [Concomitant]
     Active Substance: METOPROLOL
     Indication: HYPERTENSION
     Dosage: TAKE 50 MG BY MOUTH EVERY MORNING FOR 30 DAYS.
     Route: 048
  9. FLUTICASONE. [Concomitant]
     Active Substance: FLUTICASONE
     Indication: RHINITIS PERENNIAL
     Dosage: 50 MCG/ACT, 1 SPRAY BY NASAL ROUTE 1 TIME DAILY AS NEEDED.
     Route: 045
  10. TADALAFIL. [Concomitant]
     Active Substance: TADALAFIL
     Indication: PULMONARY ARTERIAL HYPERTENSION
     Route: 048
  11. ESTRADIOL. [Concomitant]
     Active Substance: ESTRADIOL
     Indication: ATROPHIC VULVOVAGINITIS
     Dosage: PLACE 2 G VAGINALLY THREE TIMES PER WEEK.
     Route: 067
  12. ROSUVASTATIN. [Concomitant]
     Active Substance: ROSUVASTATIN
     Indication: ARTERIAL DISORDER
     Dosage: TAKE 1 TABLET BY MOUTH EVERY EVENING
     Route: 048
  13. TADALAFIL. [Concomitant]
     Active Substance: TADALAFIL
  14. FLUTICASONE W/SALMETEROL [Concomitant]
     Active Substance: FLUTICASONE PROPIONATE\SALMETEROL XINAFOATE
     Indication: CHRONIC OBSTRUCTIVE PULMONARY DISEASE
     Dosage: 100?50 MCG/DOSE , TAKE 1 PUDD BY INHALATION EVERY 12 HOURS.
  15. SACCHAROMYCES BOULARDII [Concomitant]
     Active Substance: SACCHAROMYCES CEREVISIAE
     Indication: DIARRHOEA
     Route: 048
  16. UPTRAVI [Suspect]
     Active Substance: SELEXIPAG
     Dosage: 200 MCG, BID
     Route: 048
     Dates: start: 20190819
  17. ALBUTEROL                          /00139501/ [Concomitant]
     Active Substance: ALBUTEROL
     Indication: RESPIRATORY DISORDER
     Dosage: 108 (90 BASE) MCG/ACT, TAKE 2 PUFFS BY INHALATION EVERY 6 HOURS AS NEEDED.
  18. UPTRAVI [Suspect]
     Active Substance: SELEXIPAG
     Dosage: 400 MCG, BID
     Route: 048
     Dates: start: 20190819
  19. TYLENOL [Concomitant]
     Active Substance: ACETAMINOPHEN
  20. LOSARTAN POTASSIUM. [Concomitant]
     Active Substance: LOSARTAN POTASSIUM
     Route: 048
  21. LEVOTHYROXINE. [Concomitant]
     Active Substance: LEVOTHYROXINE
     Indication: HYPOTHYROIDISM
     Route: 048

REACTIONS (11)
  - Atrial fibrillation [Recovered/Resolved]
  - Diarrhoea [Not Recovered/Not Resolved]
  - Fluid retention [Unknown]
  - Hyponatraemia [Recovered/Resolved]
  - Acute kidney injury [Unknown]
  - Flushing [Unknown]
  - Skin infection [Unknown]
  - Muscle spasms [Unknown]
  - Pain in extremity [Unknown]
  - Headache [Unknown]
  - Hypotension [Recovered/Resolved]

NARRATIVE: CASE EVENT DATE: 20190902
